FAERS Safety Report 24880006 (Version 1)
Quarter: 2025Q1

REPORT INFORMATION
  Report Type: Spontaneous
  Country: JP (occurrence: JP)
  Receive Date: 20250123
  Receipt Date: 20250123
  Transmission Date: 20250408
  Serious: No
  Sender: PFIZER
  Company Number: JP-PFIZER INC-202500013176

PATIENT

DRUGS (1)
  1. PAXLOVID [Suspect]
     Active Substance: NIRMATRELVIR\RITONAVIR
     Indication: COVID-19 treatment
     Dosage: TWO SHEETS PER DAY
     Route: 048

REACTIONS (1)
  - Product prescribing error [Unknown]
